FAERS Safety Report 6915963-X (Version None)
Quarter: 2010Q3

REPORT INFORMATION
  Report Type: 
  Country: None (occurrence: None)
  Receive Date: 20100809
  Receipt Date: 20100809
  Transmission Date: 20110219
  Serious: Yes (Life-Threatening)
  Sender: FDA-Public Use
  Company Number: None

PATIENT
  Age: 54 Year
  Sex: Female
  Weight: 68.0396 kg

DRUGS (1)
  1. RECLAST [Suspect]
     Indication: OSTEOPOROSIS
     Dosage: ONE FULL BOTTLE INFUSED YEARLY IV
     Route: 042
     Dates: start: 20090730, end: 20100802

REACTIONS (13)
  - ABDOMINAL PAIN UPPER [None]
  - BONE PAIN [None]
  - CHEST DISCOMFORT [None]
  - CHEST PAIN [None]
  - CONSTIPATION [None]
  - FATIGUE [None]
  - GASTROOESOPHAGEAL REFLUX DISEASE [None]
  - LETHARGY [None]
  - MALAISE [None]
  - MUSCULOSKELETAL CHEST PAIN [None]
  - MUSCULOSKELETAL PAIN [None]
  - NO REACTION ON PREVIOUS EXPOSURE TO DRUG [None]
  - VOMITING [None]
